FAERS Safety Report 21539574 (Version 2)
Quarter: 2022Q4

REPORT INFORMATION
  Report Type: Report from Study
  Country: US (occurrence: US)
  Receive Date: 20221102
  Receipt Date: 20221110
  Transmission Date: 20230112
  Serious: No
  Sender: FDA-Public Use
  Company Number: US-ABBVIE-4183392

PATIENT
  Age: 79 Year
  Sex: Male

DRUGS (1)
  1. IMBRUVICA [Suspect]
     Active Substance: IBRUTINIB
     Indication: Monoclonal gammopathy
     Dosage: 420 MG
     Route: 048

REACTIONS (7)
  - Pain [Unknown]
  - Muscle spasms [Unknown]
  - Abdominal pain upper [Recovering/Resolving]
  - Urinary retention [Unknown]
  - Constipation [Unknown]
  - Urinary retention [Recovering/Resolving]
  - Anorectal discomfort [Recovering/Resolving]

NARRATIVE: CASE EVENT DATE: 20221001
